FAERS Safety Report 9786624 (Version 1)
Quarter: 2013Q4

REPORT INFORMATION
  Report Type: Spontaneous
  Country: JP (occurrence: JP)
  Receive Date: 20131227
  Receipt Date: 20131227
  Transmission Date: 20140711
  Serious: Yes (Hospitalization, Disabling, Other)
  Sender: FDA-Public Use
  Company Number: PHHY2013JP152172

PATIENT
  Age: 50 Year
  Sex: Male

DRUGS (6)
  1. HEPARIN [Suspect]
     Dosage: 625 IU, PER HPUR
  2. HEPARIN [Suspect]
     Dosage: 100 IU, UNK
  3. ACETYLSALICYLIC ACID [Suspect]
     Dosage: 160 MG, PER DAY (LOADING DOSE)
  4. ACETYLSALICYLIC ACID [Suspect]
     Dosage: 100 MG, PER DAY
  5. TICLOPIDINE [Suspect]
     Dosage: 300 MG, PER DAY (LOADING DOSE)
  6. TICLOPIDINE [Suspect]
     Dosage: 75 MG, PER DAY

REACTIONS (6)
  - Refractory cytopenia with unilineage dysplasia [Unknown]
  - Hepatic haemorrhage [Unknown]
  - Abdominal distension [Unknown]
  - Peritoneal haemorrhage [Unknown]
  - Activated partial thromboplastin time prolonged [Unknown]
  - Nervous system disorder [Unknown]
